FAERS Safety Report 9303287 (Version 1)
Quarter: 2013Q2

REPORT INFORMATION
  Report Type: Spontaneous
  Country: DE (occurrence: DE)
  Receive Date: 20130521
  Receipt Date: 20130521
  Transmission Date: 20140414
  Serious: Yes (Death)
  Sender: FDA-Public Use
  Company Number: DE-RB-053770-13

PATIENT
  Sex: 0

DRUGS (2)
  1. SUBOXONE [Suspect]
     Dosage: DOSAGE DETAILS UNKNOWN
     Route: 065
  2. SUBOXONE [Suspect]
     Indication: PRODUCT USED FOR UNKNOWN INDICATION
     Route: 065
     Dates: end: 201305

REACTIONS (1)
  - Death [Fatal]
